FAERS Safety Report 19785650 (Version 6)
Quarter: 2021Q4

REPORT INFORMATION
  Report Type: Report from Study
  Country: US (occurrence: US)
  Receive Date: 20210903
  Receipt Date: 20211215
  Transmission Date: 20220303
  Serious: Yes (Death, Life-Threatening, Hospitalization)
  Sender: FDA-Public Use
  Company Number: US-ASTELLAS-2021US033249

PATIENT
  Age: 71 Year
  Sex: Male
  Weight: 60 kg

DRUGS (8)
  1. ENFORTUMAB VEDOTIN [Suspect]
     Active Substance: ENFORTUMAB VEDOTIN
     Indication: Squamous cell carcinoma of head and neck
     Dosage: 1.25 MG/KG, CYCLIC (3 TIMES EVERY 28 DAYS)
     Route: 042
     Dates: start: 20210804, end: 20210820
  2. ASPIRIN [Concomitant]
     Active Substance: ASPIRIN
     Indication: Pain
     Route: 048
     Dates: start: 19810101
  3. ATORVASTATIN [Concomitant]
     Active Substance: ATORVASTATIN
     Indication: Blood cholesterol increased
     Route: 048
     Dates: start: 20191021
  4. BENADRYL [Concomitant]
     Active Substance: DIPHENHYDRAMINE HYDROCHLORIDE
     Indication: Insomnia
     Route: 048
     Dates: start: 20210212
  5. DOXYCYCLINE HYCLATE [Concomitant]
     Active Substance: DOXYCYCLINE HYCLATE
     Indication: Tongue neoplasm malignant stage unspecified
     Route: 048
     Dates: start: 20210514, end: 20210814
  6. FOLIC ACID [Concomitant]
     Active Substance: FOLIC ACID
     Indication: Limb injury
     Route: 048
     Dates: start: 20200515
  7. LYSINE [Concomitant]
     Active Substance: LYSINE
     Indication: Stomatitis
     Route: 048
     Dates: start: 20201201
  8. OMEPRAZOLE [Concomitant]
     Active Substance: OMEPRAZOLE
     Indication: Gastrooesophageal reflux disease
     Route: 048
     Dates: start: 20190717

REACTIONS (2)
  - Constipation [Not Recovered/Not Resolved]
  - Large intestine perforation [Fatal]

NARRATIVE: CASE EVENT DATE: 20210830
